FAERS Safety Report 24375196 (Version 1)
Quarter: 2024Q3

REPORT INFORMATION
  Report Type: Spontaneous
  Country: US (occurrence: US)
  Receive Date: 20240928
  Receipt Date: 20240928
  Transmission Date: 20241016
  Serious: Yes (Other)
  Sender: ABBVIE
  Company Number: US-ABBVIE-5939340

PATIENT

DRUGS (1)
  1. URSO 250 [Suspect]
     Active Substance: URSODIOL
     Indication: Product used for unknown indication
     Route: 048

REACTIONS (3)
  - Hepatic cirrhosis [Unknown]
  - Primary biliary cholangitis [Unknown]
  - Therapeutic product effect incomplete [Unknown]
